FAERS Safety Report 5990026-9 (Version None)
Quarter: 2008Q4

REPORT INFORMATION
  Report Type: 
  Country: None (occurrence: None)
  Receive Date: 20081209
  Receipt Date: 20081209
  Transmission Date: 20090506
  Serious: Yes (Other)
  Sender: FDA-Public Use
  Company Number: None

PATIENT
  Age: 74 Year
  Sex: Male
  Weight: 84.369 kg

DRUGS (1)
  1. FLOMAX [Suspect]
     Indication: UNEVALUABLE EVENT
     Dosage: 1 PER DAY PO
     Route: 048
     Dates: start: 20080308, end: 20080310

REACTIONS (7)
  - FEELING ABNORMAL [None]
  - NASAL DISCOMFORT [None]
  - OROPHARYNGEAL PAIN [None]
  - PRODUCT QUALITY ISSUE [None]
  - PRURITUS [None]
  - RHINORRHOEA [None]
  - URTICARIA [None]
